FAERS Safety Report 9237072 (Version 1)
Quarter: 2013Q2

REPORT INFORMATION
  Report Type: Spontaneous
  Country: US (occurrence: None)
  Receive Date: 20130417
  Receipt Date: 20130417
  Transmission Date: 20140414
  Serious: Yes (Hospitalization)
  Sender: FDA-Public Use
  Company Number: None

PATIENT
  Age: 72 Year
  Sex: Male
  Weight: 55.6 kg

DRUGS (2)
  1. WARFARIN [Suspect]
     Indication: ATRIAL FIBRILLATION
     Dosage: 6 MG  AT BEDTIME  PO?~03/19/2013  THRU  N/A
     Route: 048
     Dates: start: 20130319
  2. ENOXAPARIN [Suspect]
     Indication: ATRIAL FIBRILLATION
     Dosage: 60 MG  BID  SQ?03/19/2013  THRU  N/A
     Route: 058
     Dates: start: 20130319

REACTIONS (4)
  - Haematoma [None]
  - International normalised ratio decreased [None]
  - Haemorrhage [None]
  - Compartment syndrome [None]
